FAERS Safety Report 8908319 (Version 5)
Quarter: 2014Q4

REPORT INFORMATION
  Report Type: Report from Study
  Country: CA (occurrence: CA)
  Receive Date: 20121114
  Receipt Date: 20141017
  Transmission Date: 20150529
  Serious: Yes (Hospitalization, Other)
  Sender: FDA-Public Use
  Company Number: PHHY2012CA104226

PATIENT
  Sex: Male

DRUGS (1)
  1. CLOZARIL [Suspect]
     Active Substance: CLOZAPINE
     Indication: PRODUCT USED FOR UNKNOWN INDICATION
     Dosage: UNK
     Route: 048
     Dates: start: 20081023

REACTIONS (6)
  - Platelet count increased [Unknown]
  - White blood cell count increased [Unknown]
  - Anaemia [Unknown]
  - Drug level changed [Unknown]
  - Red blood cell count increased [Unknown]
  - Tuberculosis [Unknown]
